FAERS Safety Report 20359081 (Version 1)
Quarter: 2022Q1

REPORT INFORMATION
  Report Type: Spontaneous
  Country: CN (occurrence: CN)
  Receive Date: 20220120
  Receipt Date: 20220120
  Transmission Date: 20220424
  Serious: Yes (Other)
  Sender: FDA-Public Use
  Company Number: CN-drreddys-LIT/CHN/22/0145967

PATIENT
  Age: 69 Year
  Sex: Male

DRUGS (14)
  1. OLANZAPINE [Suspect]
     Active Substance: OLANZAPINE
     Indication: Anxiety
     Route: 048
     Dates: start: 20201106
  2. OLANZAPINE [Suspect]
     Active Substance: OLANZAPINE
     Indication: Irritability
  3. RECOMBINANT HUMAN BRAIN NATRIURETIC PEPTIDE [Concomitant]
     Indication: Product used for unknown indication
  4. GLUTATHIONE [Concomitant]
     Active Substance: GLUTATHIONE
     Indication: Product used for unknown indication
     Route: 041
  5. PANTOPRAZOLE [Concomitant]
     Active Substance: PANTOPRAZOLE
     Indication: Product used for unknown indication
  6. IRON SUCROSE [Concomitant]
     Active Substance: IRON SUCROSE
     Indication: Product used for unknown indication
  7. Compound amino acid (18AA-2) [Concomitant]
     Indication: Product used for unknown indication
  8. Multiple oil fat emulsion (C6-24) [Concomitant]
     Indication: Product used for unknown indication
  9. AMLODIPINE [Concomitant]
     Active Substance: AMLODIPINE BESYLATE
     Indication: Product used for unknown indication
     Route: 048
  10. SPIRONOLACTONE [Concomitant]
     Active Substance: SPIRONOLACTONE
     Indication: Product used for unknown indication
     Route: 048
  11. Bifidobacterium triple viable bacteria [Concomitant]
     Indication: Product used for unknown indication
  12. MOSAPRIDE [Concomitant]
     Active Substance: MOSAPRIDE
     Indication: Product used for unknown indication
  13. ASPIRIN [Concomitant]
     Active Substance: ASPIRIN
     Indication: Product used for unknown indication
  14. WARFARIN [Concomitant]
     Active Substance: WARFARIN
     Indication: Product used for unknown indication

REACTIONS (15)
  - Toxicity to various agents [Unknown]
  - Pupillary reflex impaired [Recovering/Resolving]
  - Salivary hypersecretion [Unknown]
  - Mydriasis [Recovering/Resolving]
  - Apathy [Recovering/Resolving]
  - Oxygen saturation abnormal [Recovering/Resolving]
  - Abnormal sleep-related event [Unknown]
  - Lethargy [Unknown]
  - Blood glucose abnormal [Unknown]
  - Heart rate abnormal [Recovering/Resolving]
  - Respiration abnormal [Recovering/Resolving]
  - Blood pressure abnormal [Recovering/Resolving]
  - Somnolence [Unknown]
  - Dysarthria [Recovering/Resolving]
  - Urinary incontinence [Unknown]

NARRATIVE: CASE EVENT DATE: 20201106
